FAERS Safety Report 5640621-1 (Version None)
Quarter: 2008Q1

REPORT INFORMATION
  Report Type: 
  Country: None (occurrence: None)
  Receive Date: 20080227
  Receipt Date: 20080222
  Transmission Date: 20080703
  Serious: Yes (Death, Life-Threatening, Hospitalization)
  Sender: FDA-Public Use
  Company Number: JP-AVENTIS-200810416JP

PATIENT
  Age: 73 Year
  Sex: Female
  Weight: 53 kg

DRUGS (8)
  1. AMARYL [Suspect]
     Indication: DIABETES MELLITUS
     Route: 048
  2. GLUCOBAY [Concomitant]
     Indication: DIABETES MELLITUS
     Route: 048
  3. LASIX [Concomitant]
     Indication: CARDIAC FAILURE
     Route: 048
  4. DIGOSIN [Concomitant]
     Indication: CARDIAC FAILURE
     Route: 048
  5. NORVASC                            /00972401/ [Concomitant]
     Indication: HYPERTENSION
     Route: 048
  6. ENALAPRIL MALEATE [Concomitant]
     Indication: HYPERTENSION
     Route: 048
  7. ITOROL [Concomitant]
     Indication: ANGINA PECTORIS
     Route: 048
  8. SIMVASTATIN [Concomitant]
     Indication: HYPERLIPIDAEMIA
     Route: 048

REACTIONS (2)
  - CARDIAC FAILURE ACUTE [None]
  - HYPOGLYCAEMIA [None]
